FAERS Safety Report 13357883 (Version 1)
Quarter: 2017Q1

REPORT INFORMATION
  Report Type: Spontaneous
  Country: PR (occurrence: PR)
  Receive Date: 20170322
  Receipt Date: 20170322
  Transmission Date: 20170429
  Serious: No
  Sender: FDA-Public Use
  Company Number: PR-PFIZER INC-2017116522

PATIENT
  Age: 51 Year
  Sex: Female
  Weight: 147 kg

DRUGS (1)
  1. IBRANCE [Suspect]
     Active Substance: PALBOCICLIB
     Indication: BREAST CANCER
     Dosage: 125 MG, DAILY
     Route: 048

REACTIONS (3)
  - Decreased appetite [Unknown]
  - White blood cell count decreased [Unknown]
  - Blood glucose decreased [Unknown]
